FAERS Safety Report 9194561 (Version 2)
Quarter: 2017Q2

REPORT INFORMATION
  Report Type: Spontaneous
  Country: US (occurrence: US)
  Receive Date: 20130327
  Receipt Date: 20170418
  Transmission Date: 20170830
  Serious: No
  Sender: FDA-Public Use
  Company Number: US-ALLERGAN-1205381US

PATIENT
  Sex: Female

DRUGS (2)
  1. LATISSE [Suspect]
     Active Substance: BIMATOPROST
     Indication: GROWTH OF EYELASHES
     Dosage: 2 GTT, QHS
     Route: 061
     Dates: start: 201203, end: 201203
  2. LATISSE [Suspect]
     Active Substance: BIMATOPROST
     Dosage: UNK
     Route: 061
     Dates: start: 2012, end: 201603

REACTIONS (18)
  - Growth of eyelashes [Recovered/Resolved]
  - Skin irritation [Recovered/Resolved]
  - Madarosis [Recovered/Resolved]
  - Hair colour changes [Recovering/Resolving]
  - Intraocular pressure increased [Recovered/Resolved]
  - Photophobia [Recovered/Resolved]
  - Hair growth abnormal [Not Recovered/Not Resolved]
  - Dry eye [Not Recovered/Not Resolved]
  - Drug administered at inappropriate site [Unknown]
  - Rash [Recovered/Resolved]
  - Visual impairment [Recovered/Resolved]
  - Erythema [Recovered/Resolved]
  - Blepharal pigmentation [Recovering/Resolving]
  - Eyelid vascular disorder [Not Recovered/Not Resolved]
  - Scleral hyperaemia [Recovered/Resolved]
  - Eye pruritus [Recovered/Resolved]
  - Foreign body sensation in eyes [Not Recovered/Not Resolved]
  - Eye pain [Not Recovered/Not Resolved]

NARRATIVE: CASE EVENT DATE: 2012
